FAERS Safety Report 7284111-1 (Version None)
Quarter: 2011Q1

REPORT INFORMATION
  Report Type: 
  Country: None (occurrence: None)
  Receive Date: 20110209
  Receipt Date: 20100427
  Transmission Date: 20110831
  Serious: Yes (Other)
  Sender: FDA-Public Use
  Company Number: US-PFIZER INC-2010054582

PATIENT
  Sex: Male
  Weight: 82 kg

DRUGS (4)
  1. CADUET [Suspect]
     Indication: HYPERTENSION
     Dosage: 5 MG/10 MG, DAILY
     Route: 048
     Dates: start: 20080101, end: 20100417
  2. WELLBUTRIN [Concomitant]
     Dosage: 100 MG IN THE MORNING, 150 MG IN THE EVENING
     Dates: start: 20000101
  3. CADUET [Suspect]
     Indication: BLOOD CHOLESTEROL INCREASED
     Dosage: 5 MG/80 MG, DAILY
  4. WELLBUTRIN [Concomitant]
     Indication: DEPRESSION
     Dosage: 100 MG, 2X/DAY
     Route: 048
     Dates: start: 20000101

REACTIONS (3)
  - MYALGIA [None]
  - MUSCULAR WEAKNESS [None]
  - MUSCLE SPASMS [None]
